FAERS Safety Report 21581802 (Version 1)
Quarter: 2022Q4

REPORT INFORMATION
  Report Type: Spontaneous
  Country: IT (occurrence: IT)
  Receive Date: 20221111
  Receipt Date: 20221111
  Transmission Date: 20230113
  Serious: Yes (Hospitalization, Other)
  Sender: FDA-Public Use
  Company Number: IT-MINISAL02-891167

PATIENT
  Age: 67 Year
  Sex: Male
  Weight: 75 kg

DRUGS (3)
  1. OXALIPLATIN [Suspect]
     Active Substance: OXALIPLATIN
     Indication: Chemotherapy multiple agents systemic
     Dosage: 131 MILLIGRAM (SINGLE DOSE)
     Route: 042
     Dates: start: 20220727, end: 20220727
  2. IRINOTECAN HYDROCHLORIDE [Suspect]
     Active Substance: IRINOTECAN HYDROCHLORIDE
     Indication: Chemotherapy multiple agents systemic
     Dosage: 232 MILLIGRAM (SINGLE DOSE)
     Route: 042
     Dates: start: 20220727, end: 20220727
  3. FLUOROURACIL [Suspect]
     Active Substance: FLUOROURACIL
     Indication: Chemotherapy multiple agents systemic
     Dosage: 1860 MILLIGRAM (SINGLE DOSE)
     Route: 042
     Dates: start: 20220727, end: 20220727

REACTIONS (6)
  - Drug-induced liver injury [Recovered/Resolved]
  - Enteritis [Recovered/Resolved]
  - Dehydration [Recovered/Resolved]
  - Nausea [Recovered/Resolved]
  - Diarrhoea [Recovered/Resolved]
  - Decreased appetite [Recovered/Resolved]

NARRATIVE: CASE EVENT DATE: 20220730
